FAERS Safety Report 19263844 (Version 1)
Quarter: 2021Q2

REPORT INFORMATION
  Report Type: Spontaneous
  Country: US (occurrence: US)
  Receive Date: 20210514
  Receipt Date: 20210514
  Transmission Date: 20210717
  Serious: Yes (Disabling)
  Sender: FDA-Public Use
  Company Number: None

PATIENT
  Age: 76 Year
  Sex: Male
  Weight: 76.95 kg

DRUGS (15)
  1. CALTRATE +D 600MG [Concomitant]
  2. RIVASTIGMINE TRANSDERMAL SYSTEM 9.5 MG/24HR PATCH [Concomitant]
  3. LOVONOX INJECTIONS [Concomitant]
  4. OMEGA 3 FISH OIL [Concomitant]
     Active Substance: FISH OIL\OMEGA-3 FATTY ACIDS
  5. BELSOMRA [Concomitant]
     Active Substance: SUVOREXANT
  6. GNC MEGA MEN MULTIVITAMIN 9 [Concomitant]
  7. INOSITOL 500 [Concomitant]
  8. TRINTELLIX 15 MG [Concomitant]
  9. ASPIRIN 325 MG [Concomitant]
     Active Substance: ASPIRIN
  10. FOLIC ACID 800 MC [Concomitant]
  11. VITAMIN D [Concomitant]
     Active Substance: VITAMIN D NOS
  12. VIAGRA 100 PRN [Concomitant]
  13. RIVASTIGMINE TRANSDERMAL SYSTEM [Suspect]
     Active Substance: RIVASTIGMINE
     Indication: DEMENTIA ALZHEIMER^S TYPE
     Dosage: ?          QUANTITY:1 PATCH(ES);?
     Route: 062
     Dates: start: 20210318, end: 20210513
  14. CRESTOR 40MG [Concomitant]
  15. COENZYME Q10 [Concomitant]
     Active Substance: DIETARY SUPPLEMENT\UBIDECARENONE

REACTIONS (2)
  - Application site rash [None]
  - Drug ineffective [None]

NARRATIVE: CASE EVENT DATE: 20210513
